FAERS Safety Report 4647369-0 (Version None)
Quarter: 2005Q2

REPORT INFORMATION
  Report Type: 
  Country: None (occurrence: None)
  Receive Date: 20050426
  Receipt Date: 20050412
  Transmission Date: 20051028
  Serious: Yes (Hospitalization)
  Sender: FDA-Public Use
  Company Number: 2005BI007524

PATIENT
  Age: 78 Year
  Sex: Male
  Weight: 80.2867 kg

DRUGS (1)
  1. AVONEX [Suspect]
     Indication: MULTIPLE SCLEROSIS
     Dosage: 30 UG; QW; IM
     Route: 030
     Dates: start: 20030101, end: 20050405

REACTIONS (6)
  - DIABETES MELLITUS [None]
  - DYSPNOEA [None]
  - KIDNEY INFECTION [None]
  - LUNG DISORDER [None]
  - MYOCARDIAL INFARCTION [None]
  - PROGRESSIVE MULTIPLE SCLEROSIS [None]
